FAERS Safety Report 15867472 (Version 1)
Quarter: 2019Q1

REPORT INFORMATION
  Report Type: Report from Study
  Country: DE (occurrence: DE)
  Receive Date: 20190125
  Receipt Date: 20190125
  Transmission Date: 20190417
  Serious: Yes (Hospitalization)
  Sender: FDA-Public Use
  Company Number: DE-JNJFOC-20180842084

PATIENT
  Age: 78 Year
  Sex: Male
  Weight: 97 kg

DRUGS (24)
  1. DIGITOXIN [Concomitant]
     Active Substance: DIGITOXIN
     Route: 065
     Dates: start: 20180827, end: 20180921
  2. TOREM [Concomitant]
     Active Substance: TORSEMIDE
     Route: 065
     Dates: start: 20180827
  3. FOSTER [Concomitant]
     Active Substance: BECLOMETHASONE\FORMOTEROL
     Route: 065
  4. TAMSULOSIN [Concomitant]
     Active Substance: TAMSULOSIN
     Route: 065
  5. ASPIRIN. [Concomitant]
     Active Substance: ASPIRIN
     Route: 065
     Dates: end: 20180921
  6. PANTOZOL [Concomitant]
     Active Substance: PANTOPRAZOLE SODIUM
     Route: 065
  7. MOVICOL [Concomitant]
     Active Substance: POLYETHYLENE GLYCOL 3350\POTASSIUM CHLORIDE\SODIUM BICARBONATE\SODIUM CHLORIDE
     Route: 065
  8. MAGNESIUM [Concomitant]
     Active Substance: MAGNESIUM
     Route: 065
     Dates: end: 20180921
  9. XIPAMID [Concomitant]
     Active Substance: XIPAMIDE
     Route: 065
  10. PALEXIA [Concomitant]
     Active Substance: TAPENTADOL HYDROCHLORIDE
     Route: 065
     Dates: end: 20180921
  11. LAXANS AL [Concomitant]
     Indication: PROPHYLAXIS
     Route: 065
     Dates: start: 20180906
  12. LERCANIDIPINE [Concomitant]
     Active Substance: LERCANIDIPINE
     Route: 065
     Dates: end: 20180921
  13. BEFIBRAT [Concomitant]
     Active Substance: BEZAFIBRATE
     Route: 065
     Dates: end: 20180921
  14. LIMPTAR [Concomitant]
     Active Substance: AMINOPHYLLINE\QUININE SULFATE
     Route: 065
     Dates: end: 20180921
  15. PANTOPRAZOL [Concomitant]
     Active Substance: PANTOPRAZOLE SODIUM
     Indication: PROPHYLAXIS
     Route: 065
     Dates: start: 20180827
  16. BISOPROLOL [Concomitant]
     Active Substance: BISOPROLOL
     Route: 065
     Dates: start: 20180827
  17. FRAXIPARINE [Concomitant]
     Active Substance: NADROPARIN CALCIUM
     Route: 065
     Dates: start: 20180827, end: 20180905
  18. RISPERIDONE. [Concomitant]
     Active Substance: RISPERIDONE
     Route: 065
     Dates: start: 20180906
  19. CLEXANE [Concomitant]
     Active Substance: ENOXAPARIN SODIUM
     Route: 065
     Dates: start: 20180906, end: 20180921
  20. CANDESARTAN. [Concomitant]
     Active Substance: CANDESARTAN
     Route: 065
  21. FOLATE [Concomitant]
     Active Substance: FOLATE SODIUM
     Route: 065
     Dates: start: 20180921
  22. MELPERON [Concomitant]
     Active Substance: MELPERONE
     Route: 065
     Dates: start: 20180921
  23. IBRUTINIB [Suspect]
     Active Substance: IBRUTINIB
     Indication: CHRONIC LYMPHOCYTIC LEUKAEMIA
     Route: 048
     Dates: start: 20180813, end: 20180826
  24. IBRUTINIB [Suspect]
     Active Substance: IBRUTINIB
     Indication: CHRONIC LYMPHOCYTIC LEUKAEMIA
     Route: 048
     Dates: start: 20180918

REACTIONS (7)
  - Fall [Unknown]
  - Hyperuricaemia [Recovered/Resolved]
  - Lymphadenitis bacterial [Recovered/Resolved]
  - Acute kidney injury [Recovered/Resolved]
  - Respiratory failure [Recovered/Resolved]
  - Renal injury [Unknown]
  - Pneumonia [Recovered/Resolved]

NARRATIVE: CASE EVENT DATE: 20180827
